FAERS Safety Report 6640444-0 (Version None)
Quarter: 2010Q1

REPORT INFORMATION
  Report Type: 
  Country: None (occurrence: None)
  Receive Date: 20100318
  Receipt Date: 20100309
  Transmission Date: 20100710
  Serious: Yes (Other)
  Sender: FDA-Public Use
  Company Number: US-PFIZER INC-2010031256

PATIENT
  Sex: Male
  Weight: 96.145 kg

DRUGS (9)
  1. ZYVOX [Suspect]
     Indication: PROPHYLAXIS
     Dosage: 600 MG, 2X/DAY
     Route: 048
     Dates: start: 20100305
  2. ATENOLOL [Concomitant]
  3. FUROSEMIDE [Concomitant]
  4. ASPIRIN [Concomitant]
  5. LISINOPRIL [Concomitant]
  6. INSULIN [Concomitant]
  7. HUMALOG [Concomitant]
  8. PLAVIX [Concomitant]
  9. CRESTOR [Concomitant]

REACTIONS (1)
  - BLOOD GLUCOSE INCREASED [None]
